FAERS Safety Report 5375408-0 (Version None)
Quarter: 2007Q2

REPORT INFORMATION
  Report Type: 
  Country: None (occurrence: None)
  Receive Date: 20070627
  Receipt Date: 20070615
  Transmission Date: 20071010
  Serious: Yes (Hospitalization)
  Sender: FDA-Public Use
  Company Number: 20070156 /

PATIENT
  Age: 55 Year
  Sex: Female

DRUGS (1)
  1. VENOFER [Suspect]
     Indication: ANAEMIA
     Dosage: 200 MG; ONCE PER WEEK INTRAVENOUS
     Route: 042
     Dates: start: 20070508, end: 20070522

REACTIONS (2)
  - HAEMOGLOBIN DECREASED [None]
  - ILEUS [None]
